FAERS Safety Report 7606090-7 (Version None)
Quarter: 2011Q3

REPORT INFORMATION
  Report Type: 
  Country: None (occurrence: None)
  Receive Date: 20110713
  Receipt Date: 20110629
  Transmission Date: 20111222
  Serious: Yes (Hospitalization)
  Sender: FDA-Public Use
  Company Number: AU-ELI_LILLY_AND_COMPANY-AU201106008347

PATIENT
  Age: 57 Year
  Sex: Female

DRUGS (2)
  1. BYETTA [Suspect]
     Dosage: 5 UG, BID
     Dates: start: 20110608
  2. BYETTA [Suspect]
     Dosage: UNK UNK, BID
     Dates: start: 20110608

REACTIONS (6)
  - INJECTION SITE HAEMATOMA [None]
  - PNEUMONIA [None]
  - WRONG DRUG ADMINISTERED [None]
  - BLOOD URINE PRESENT [None]
  - CONTUSION [None]
  - BLOOD GLUCOSE INCREASED [None]
